FAERS Safety Report 7251285-8 (Version None)
Quarter: 2011Q1

REPORT INFORMATION
  Report Type: 
  Country: None (occurrence: None)
  Receive Date: 20110119
  Receipt Date: 20110112
  Transmission Date: 20110831
  Serious: Yes (Hospitalization)
  Sender: FDA-Public Use
  Company Number: DSU-2010-06607

PATIENT
  Sex: Female
  Weight: 60.782 kg

DRUGS (10)
  1. BENICAR [Suspect]
     Indication: HYPERTENSION
     Dosage: PER ORAL
     Route: 048
  2. METFORMIN (METFORMIN) (500 MILLIGRAM) (METFORMIN) [Concomitant]
  3. SIMVASTATIN (SIMVASTATIN) (20 MILLGIRAM) (SIMVASTATIN) [Concomitant]
  4. TRIBENZOR [Suspect]
     Indication: HYPERTENSION
     Dosage: 40/10/25 MILLIGRAMS (QD),PER ORAL
     Route: 048
     Dates: start: 20101102
  5. AZOR [Suspect]
     Indication: HYPERTENSION
     Dosage: 10/40 MG, (QD),PER ORAL
     Route: 048
     Dates: start: 20090101, end: 20101101
  6. BYSTOLIC (NEBIVOLOL HYDROCHLORIDE) (10 MILLIGRAM) (NEBIVOLOL HYDROCHLO [Concomitant]
  7. FLU SHOT (INFLUENZA VIRUS VACCINE POLYVALENT) (INJECTION) (INFLUENZA V [Suspect]
     Indication: INFLUENZA IMMUNISATION
     Dosage: 1 OOSAGE FORMS (1 DOSAGE FORMS),INTRAMUSCULAR
     Route: 030
     Dates: start: 20101116, end: 20101116
  8. PLAVIX (CLOPIDOGREL) (75 MILLIGRAM) (CLOPIDOGREL) [Concomitant]
  9. NATEGLINIDE (NATEGLINIDE) (120 MILLIGRAM) (NATEGLINIDE) [Concomitant]
  10. FAMOTIDINE (FAMOTIDINE) (20 MILLIGRAM) (FAMOTIDINE) [Concomitant]

REACTIONS (4)
  - BLOOD GLUCOSE INCREASED [None]
  - ARTERIAL OCCLUSIVE DISEASE [None]
  - COUGH [None]
  - OEDEMA PERIPHERAL [None]
